FAERS Safety Report 17485646 (Version 1)
Quarter: 2020Q1

REPORT INFORMATION
  Report Type: Spontaneous
  Country: FR (occurrence: FR)
  Receive Date: 20200302
  Receipt Date: 20200302
  Transmission Date: 20200409
  Serious: Yes (Hospitalization)
  Sender: FDA-Public Use
  Company Number: FR-TEVA-2020-FR-1193733

PATIENT
  Age: 62 Year
  Sex: Female
  Weight: 67 kg

DRUGS (11)
  1. SOTALOL (CHLORHYDRATE DE) [Concomitant]
     Active Substance: SOTALOL
     Indication: HYPERTENSION
     Dosage: 40 MG-0-40MG; 80 MG
     Route: 048
  2. SPECIAFOLDINE [Concomitant]
     Active Substance: FOLIC ACID
     Indication: ANAEMIA PROPHYLAXIS
     Dosage: 0-1-0; 1 DF
     Route: 048
  3. PREGABALINE TEVA [Suspect]
     Active Substance: PREGABALIN
     Indication: PAIN
     Dosage: 300 MG
     Route: 048
     Dates: start: 20191201
  4. CONTRAMAL [Suspect]
     Active Substance: TRAMADOL HYDROCHLORIDE
     Indication: PAIN
     Dosage: 50 MG IF PAIN
     Route: 042
     Dates: start: 20200131, end: 20200206
  5. SETOFILM 8 MG, FILM ORODISPERSIBLE [Suspect]
     Active Substance: ONDANSETRON
     Indication: PROPHYLAXIS OF NAUSEA AND VOMITING
     Dosage: 1-0-1; 16 MG
     Route: 048
     Dates: start: 20200130
  6. ALPRAZOLAM. [Concomitant]
     Active Substance: ALPRAZOLAM
     Indication: ANXIETY
     Dosage: 2 DF
     Route: 048
  7. PACLITAXEL AHCL [Suspect]
     Active Substance: PACLITAXEL
     Indication: INVASIVE DUCTAL BREAST CARCINOMA
     Dosage: 144 MG
     Route: 042
     Dates: start: 20200130, end: 20200206
  8. LOVENOX [Suspect]
     Active Substance: ENOXAPARIN SODIUM
     Indication: THROMBOSIS PROPHYLAXIS
     Dosage: 4000 IU
     Route: 058
     Dates: start: 20200131
  9. RAMIPRIL. [Concomitant]
     Active Substance: RAMIPRIL
     Indication: HYPERTENSION
     Dosage: 1-0-0; 2.5 MG
     Route: 048
  10. MORPHINE AGUETTANT [Suspect]
     Active Substance: MORPHINE HYDROCHLORIDE
     Indication: PAIN
     Dosage: CF COMMENTARY
     Route: 042
     Dates: start: 20200131
  11. ACCOFIL [Suspect]
     Active Substance: FILGRASTIM
     Indication: COLONY STIMULATING FACTOR THERAPY
     Dosage: 48 MU
     Route: 042
     Dates: start: 20200201, end: 20200201

REACTIONS (2)
  - Gamma-glutamyltransferase increased [Not Recovered/Not Resolved]
  - Hepatocellular injury [Not Recovered/Not Resolved]

NARRATIVE: CASE EVENT DATE: 20200205
